FAERS Safety Report 9149330 (Version 1)
Quarter: 2013Q1

REPORT INFORMATION
  Report Type: Spontaneous
  Country: US (occurrence: US)
  Receive Date: 20130308
  Receipt Date: 20130308
  Transmission Date: 20140127
  Serious: Yes (Other)
  Sender: FDA-Public Use
  Company Number: US-PFIZER INC-2013078523

PATIENT
  Age: 75 Year
  Sex: Female
  Weight: 68 kg

DRUGS (1)
  1. TIKOSYN [Suspect]
     Indication: ARRHYTHMIA
     Dosage: 0.25 MG, 2X/DAY
     Dates: start: 2010

REACTIONS (2)
  - Wound infection [Not Recovered/Not Resolved]
  - Laceration [Not Recovered/Not Resolved]
